FAERS Safety Report 10082355 (Version 1)
Quarter: 2014Q2

REPORT INFORMATION
  Report Type: Spontaneous
  Country: US (occurrence: None)
  Receive Date: 20140415
  Receipt Date: 20140415
  Transmission Date: 20141212
  Serious: Yes (Disabling)
  Sender: FDA-Public Use
  Company Number: None

PATIENT
  Age: 38 Year
  Sex: Female
  Weight: 52.16 kg

DRUGS (1)
  1. VENLAFAXINE ER [Suspect]
     Indication: DEPRESSION
     Dosage: 1 CAPSULE ONCE DAILY
     Route: 048
     Dates: start: 20140113, end: 20140410

REACTIONS (10)
  - Product substitution issue [None]
  - Product quality issue [None]
  - Drug withdrawal syndrome [None]
  - Vertigo [None]
  - Paraesthesia [None]
  - Hyperhidrosis [None]
  - Mood altered [None]
  - Early satiety [None]
  - Gastrointestinal disorder [None]
  - Anxiety [None]
